FAERS Safety Report 25303890 (Version 1)
Quarter: 2025Q2

REPORT INFORMATION
  Report Type: Spontaneous
  Country: US (occurrence: US)
  Receive Date: 20250513
  Receipt Date: 20250513
  Transmission Date: 20250717
  Serious: Yes (Other)
  Sender: NOVO NORDISK
  Company Number: US-NOVOPROD-1423050

PATIENT
  Weight: 93.424 kg

DRUGS (1)
  1. OZEMPIC [Suspect]
     Active Substance: SEMAGLUTIDE
     Indication: Product used for unknown indication

REACTIONS (5)
  - Spinal operation [Unknown]
  - Knee arthroplasty [Unknown]
  - Shoulder operation [Unknown]
  - Rotator cuff repair [Unknown]
  - Drug ineffective [Unknown]
